FAERS Safety Report 20412978 (Version 3)
Quarter: 2022Q2

REPORT INFORMATION
  Report Type: Spontaneous
  Country: US (occurrence: US)
  Receive Date: 20220201
  Receipt Date: 20220415
  Transmission Date: 20220721
  Serious: Yes (Hospitalization, Other)
  Sender: FDA-Public Use
  Company Number: US-JNJFOC-20211212475

PATIENT
  Age: 74 Year
  Sex: Male
  Weight: 86.714 kg

DRUGS (5)
  1. ZYTIGA [Suspect]
     Active Substance: ABIRATERONE ACETATE
     Indication: Product used for unknown indication
     Route: 048
     Dates: start: 20210101
  2. COVID-19 VACCINE [Concomitant]
     Indication: COVID-19 prophylaxis
     Dosage: FIRST DOSE
     Route: 065
     Dates: start: 20210213
  3. COVID-19 VACCINE [Concomitant]
     Dosage: SECOND DOSE
     Route: 065
     Dates: start: 20210313
  4. COVID-19 VACCINE [Concomitant]
     Dosage: BOOSTER DOSE
     Route: 065
     Dates: start: 20211203
  5. ASPIRIN [Concomitant]
     Active Substance: ASPIRIN
     Indication: Product used for unknown indication
     Route: 065

REACTIONS (10)
  - Syncope [Unknown]
  - Vertigo [Recovering/Resolving]
  - Nausea [Recovering/Resolving]
  - Cold sweat [Recovering/Resolving]
  - Paraesthesia [Recovered/Resolved]
  - Hyperhidrosis [Unknown]
  - Insomnia [Unknown]
  - Pain [Unknown]
  - Pyrexia [Unknown]
  - Hypotension [Unknown]

NARRATIVE: CASE EVENT DATE: 20211202
